FAERS Safety Report 24871889 (Version 1)
Quarter: 2025Q1

REPORT INFORMATION
  Report Type: Spontaneous
  Country: TR (occurrence: TR)
  Receive Date: 20250122
  Receipt Date: 20250122
  Transmission Date: 20250408
  Serious: Yes (Death, Other)
  Sender: Steriscience PTE
  Company Number: TR-STERISCIENCE B.V.-2025-ST-000090

PATIENT

DRUGS (2)
  1. MEROPENEM [Suspect]
     Active Substance: MEROPENEM
     Indication: Bacterial infection
     Route: 065
  2. MEROPENEM [Suspect]
     Active Substance: MEROPENEM
     Indication: Pathogen resistance

REACTIONS (1)
  - Drug ineffective for unapproved indication [Fatal]
